FAERS Safety Report 4545854-3 (Version None)
Quarter: 2005Q1

REPORT INFORMATION
  Report Type: 
  Country: None (occurrence: None)
  Receive Date: 20050105
  Receipt Date: 20050105
  Transmission Date: 20050727
  Serious: Yes (Hospitalization)
  Sender: FDA-Public Use
  Company Number: None

PATIENT
  Age: 66 Year
  Sex: Male
  Weight: 84.369 kg

DRUGS (3)
  1. OXALIPLATIN 150 MG IN 500 DSW OVER 2 HR [Suspect]
     Indication: COLON CANCER STAGE IV
     Dosage: 150 MG OVER 2 HR
     Dates: start: 20040505
  2. OXALIPLATIN 150 MG IN 500 DSW [Suspect]
  3. LEUCOVORIN CALCIUM [Concomitant]

REACTIONS (7)
  - ABDOMINAL PAIN UPPER [None]
  - BACK PAIN [None]
  - CARDIAC DISORDER [None]
  - ERYTHEMA [None]
  - OEDEMA MOUTH [None]
  - RASH [None]
  - SWELLING FACE [None]
